FAERS Safety Report 8961704 (Version 2)
Quarter: 2014Q2

REPORT INFORMATION
  Report Type: Spontaneous
  Country: JP (occurrence: JP)
  Receive Date: 20121212
  Receipt Date: 20131018
  Transmission Date: 20141212
  Serious: Yes (Hospitalization)
  Sender: FDA-Public Use
  Company Number: JP-PFIZER INC-2012305078

PATIENT
  Age: 29 Year
  Sex: Female

DRUGS (4)
  1. BUPIVACAINE HCL [Suspect]
     Indication: ANAESTHESIA
     Dosage: 2.4 ML, 0.5%
  2. MORPHINE SULFATE [Suspect]
     Dosage: 4 %, UNK
  3. DROLEPTAN [Suspect]
     Indication: ANAESTHESIA
     Dosage: UNK
  4. ROPIVACAINE [Suspect]
     Indication: ANAESTHESIA
     Dosage: 0.2 %, UNK

REACTIONS (4)
  - Arachnoiditis [Unknown]
  - Acquired syringomyelia [Unknown]
  - Arachnoid cyst [Unknown]
  - Paraplegia [Unknown]
